FAERS Safety Report 8484561 (Version 3)
Quarter: 2012Q4

REPORT INFORMATION
  Report Type: 
  Country: JP (occurrence: JP)
  Receive Date: 20120330
  Receipt Date: 20121005
  Transmission Date: 20130627
  Serious: Yes (Life-Threatening, Hospitalization, Other)
  Sender: FDA-Public Use
  Company Number: JP-BAYER-2012-030838

PATIENT
  Age: 64 Year
  Sex: Female
  Weight: 45 kg

DRUGS (10)
  1. NEXAVAR [Suspect]
     Indication: RENAL CELL CARCINOMA
     Dosage: 400 mg, BID
     Route: 048
     Dates: start: 20111118, end: 20120321
  2. RHEUMATREX [Suspect]
     Indication: MUSCULOSKELETAL PAIN
     Dosage: UNK
     Route: 048
     Dates: end: 201203
  3. TAKEPRON [Concomitant]
     Dosage: UNK
  4. TRAMAL [Concomitant]
  5. METHYCOBAL [Concomitant]
  6. VOLTAREN - SLOW RELEASE [Concomitant]
     Route: 048
  7. PREDONINE [Concomitant]
  8. REBAMIPIDE [Concomitant]
  9. BIOFERMIN [Concomitant]
     Route: 048
  10. LOPEMIN [Concomitant]
     Dosage: UNK
     Route: 048

REACTIONS (7)
  - Myelodysplastic syndrome [Not Recovered/Not Resolved]
  - Pancytopenia [Unknown]
  - Disseminated intravascular coagulation [None]
  - Haematochezia [None]
  - Diarrhoea [None]
  - White blood cell count decreased [Unknown]
  - Platelet count decreased [Unknown]
